FAERS Safety Report 18203389 (Version 1)
Quarter: 2020Q3

REPORT INFORMATION
  Report Type: Spontaneous
  Country: US (occurrence: US)
  Receive Date: 20200827
  Receipt Date: 20200827
  Transmission Date: 20201103
  Serious: No
  Sender: FDA-Public Use
  Company Number: US-MYLANLABS-2020M1072036

PATIENT
  Sex: Female

DRUGS (1)
  1. LIDOCAINE PATCH [Suspect]
     Active Substance: LIDOCAINE
     Indication: SPINAL PAIN
     Dosage: DO NOT APPLY EVERYDAY
     Route: 003

REACTIONS (6)
  - Product adhesion issue [Not Recovered/Not Resolved]
  - Respiration abnormal [Recovered/Resolved]
  - Off label use [Recovering/Resolving]
  - Wrong technique in product usage process [Unknown]
  - Nausea [Recovered/Resolved]
  - Product quality issue [Unknown]
